FAERS Safety Report 21696974 (Version 1)
Quarter: 2022Q4

REPORT INFORMATION
  Report Type: Spontaneous
  Country: US (occurrence: US)
  Receive Date: 20221208
  Receipt Date: 20221208
  Transmission Date: 20230112
  Serious: No
  Sender: FDA-Public Use
  Company Number: US-SA-SAC20221205001179

PATIENT
  Sex: Female

DRUGS (1)
  1. DUPIXENT [Suspect]
     Active Substance: DUPILUMAB
     Dosage: 300 MG, BIW
     Route: 058
     Dates: end: 20221114

REACTIONS (3)
  - Abdominal pain upper [Recovered/Resolved]
  - Bone pain [Recovered/Resolved]
  - Inappropriate schedule of product administration [Unknown]
